FAERS Safety Report 23245763 (Version 1)
Quarter: 2023Q4

REPORT INFORMATION
  Report Type: Spontaneous
  Country: GB (occurrence: GB)
  Receive Date: 20231130
  Receipt Date: 20231130
  Transmission Date: 20240110
  Serious: Yes (Other)
  Sender: FDA-Public Use
  Company Number: None

PATIENT
  Age: 51 Year
  Sex: Female
  Weight: 72 kg

DRUGS (1)
  1. MIRENA [Suspect]
     Active Substance: LEVONORGESTREL
     Indication: Hormone replacement therapy
     Dosage: 20?G/DAY
     Route: 015
     Dates: start: 202306

REACTIONS (4)
  - Major depression [Not Recovered/Not Resolved]
  - Depressed mood [None]
  - Suicidal ideation [None]
  - Social avoidant behaviour [None]

NARRATIVE: CASE EVENT DATE: 20230601
